FAERS Safety Report 5926758-8 (Version None)
Quarter: 2008Q4

REPORT INFORMATION
  Report Type: 
  Country: None (occurrence: None)
  Receive Date: 20081022
  Receipt Date: 20081016
  Transmission Date: 20090506
  Serious: Yes (Death, Hospitalization, Other)
  Sender: FDA-Public Use
  Company Number: BR-ABBOTT-08P-020-0447464-00

PATIENT
  Sex: Female
  Weight: 40 kg

DRUGS (6)
  1. HUMIRA [Suspect]
     Indication: RHEUMATOID ARTHRITIS
     Route: 058
     Dates: start: 20070801, end: 20080412
  2. ISONIAZID [Suspect]
     Indication: TUBERCULOSIS
  3. PYRAZINAMIDE [Suspect]
     Indication: TUBERCULOSIS
  4. RIFAMPICIN [Suspect]
     Indication: TUBERCULOSIS
  5. SPIRONOLACTONE [Concomitant]
     Indication: VARICOSE VEIN
     Route: 048
  6. UNKNOWN MAGISTRAL FORMULA WITH 4 COMPOUNDS [Concomitant]
     Indication: RHEUMATOID ARTHRITIS

REACTIONS (16)
  - BLOOD CREATININE INCREASED [None]
  - BLOOD UREA INCREASED [None]
  - CHOLECYSTITIS CHRONIC [None]
  - DISSEMINATED TUBERCULOSIS [None]
  - DYSPNOEA [None]
  - INFECTED CYST [None]
  - INFECTION [None]
  - INFLUENZA [None]
  - LIVER DISORDER [None]
  - LUNG DISORDER [None]
  - MALNUTRITION [None]
  - NAUSEA [None]
  - PULMONARY TUBERCULOSIS [None]
  - RENAL DISORDER [None]
  - SEPSIS [None]
  - WEIGHT DECREASED [None]
